FAERS Safety Report 4331001-X (Version None)
Quarter: 2004Q1

REPORT INFORMATION
  Report Type: 
  Country: None (occurrence: None)
  Receive Date: 20040331
  Receipt Date: 20040317
  Transmission Date: 20041129
  Serious: Yes (Hospitalization, Other)
  Sender: FDA-Public Use
  Company Number: USA040362295

PATIENT
  Age: 77 Year
  Sex: Female
  Weight: 105 kg

DRUGS (3)
  1. HUMULIN 70/30 [Suspect]
     Dosage: 54 U DAY
     Dates: start: 20000101
  2. SYNTHROID [Concomitant]
  3. GLIPIZIDE [Concomitant]

REACTIONS (10)
  - CONVULSION [None]
  - DEHYDRATION [None]
  - DIABETIC COMPLICATION [None]
  - HYPERHIDROSIS [None]
  - MYOCARDIAL INFARCTION [None]
  - PHARMACEUTICAL PRODUCT COMPLAINT [None]
  - SINUSITIS [None]
  - SKIN ULCER [None]
  - TREMOR [None]
  - VISION BLURRED [None]
